FAERS Safety Report 13163120 (Version 1)
Quarter: 2017Q1

REPORT INFORMATION
  Report Type: Spontaneous
  Country: GR (occurrence: GR)
  Receive Date: 20170130
  Receipt Date: 20170130
  Transmission Date: 20170428
  Serious: Yes (Hospitalization, Other)
  Sender: FDA-Public Use
  Company Number: GR-APOTEX-2017AP006110

PATIENT
  Age: 74 Year
  Sex: Male

DRUGS (1)
  1. CLOPIDOGREL APOTEX [Suspect]
     Active Substance: CLOPIDOGREL BISULFATE
     Indication: PRODUCT USED FOR UNKNOWN INDICATION
     Route: 065

REACTIONS (2)
  - Dieulafoy^s vascular malformation [Recovered/Resolved]
  - Jejunal ulcer [Recovered/Resolved]
